FAERS Safety Report 9848315 (Version 1)
Quarter: 2014Q1

REPORT INFORMATION
  Report Type: Spontaneous
  Country: US (occurrence: None)
  Receive Date: 20140123
  Receipt Date: 20140123
  Transmission Date: 20141002
  Serious: Yes (Hospitalization)
  Sender: FDA-Public Use
  Company Number: None

PATIENT
  Age: 74 Year
  Sex: Male
  Weight: 78.93 kg

DRUGS (4)
  1. ABRAXANE [Suspect]
     Indication: PANCREATIC CARCINOMA STAGE IV
     Dosage: Q2 WEEKS IV
     Route: 042
     Dates: start: 20140111
  2. 5-FU [Suspect]
  3. OXALIPLATIN [Suspect]
  4. FOLINIC ACID [Suspect]

REACTIONS (4)
  - Constipation [None]
  - Nausea [None]
  - Pain [None]
  - Large intestinal obstruction [None]
